FAERS Safety Report 24060013 (Version 1)
Quarter: 2024Q3

REPORT INFORMATION
  Report Type: Spontaneous
  Country: KR (occurrence: None)
  Receive Date: 20240704
  Receipt Date: 20240704
  Transmission Date: 20241017
  Serious: Yes (Hospitalization, Other)
  Sender: Public
  Company Number: None

PATIENT
  Age: 77 Year
  Sex: Female

DRUGS (6)
  1. BACLOFEN [Suspect]
     Active Substance: BACLOFEN
     Indication: Myalgia
     Dosage: 10 MG TWICE A DAY
     Route: 065
  2. Eperisone 100 mg [Concomitant]
  3. PREGABALIN [Concomitant]
     Active Substance: PREGABALIN
  4. Acetaminophen 162.5 mg [Concomitant]
  5. Tramadol hydrochloride 18.75 mg [Concomitant]
  6. Aceclofenac 100 mg [Concomitant]

REACTIONS (13)
  - Loss of consciousness [None]
  - Fall [None]
  - Mental status changes [None]
  - Nausea [None]
  - Vomiting [None]
  - Dizziness [None]
  - Depressed level of consciousness [None]
  - Toxicity to various agents [None]
  - Muscle relaxant drug level above therapeutic [None]
  - Stupor [None]
  - Blood glucose increased [None]
  - Vertebral artery stenosis [None]
  - Cerebral artery stenosis [None]
